FAERS Safety Report 8392940-6 (Version None)
Quarter: 2012Q1

REPORT INFORMATION
  Report Type: 
  Country: None (occurrence: None)
  Receive Date: 20120323
  Receipt Date: 20110325
  Transmission Date: 20120608
  Serious: Yes (Hospitalization)
  Sender: FDA-Public Use
  Company Number: 163-21880-11030369

PATIENT
  Age: 85 Year
  Sex: Female

DRUGS (15)
  1. COLACE (DOCUSATE SODIUM) [Concomitant]
  2. POTASSIUM CHLORIDE [Concomitant]
  3. ARANESP [Concomitant]
  4. CALCIUM CARBONATE [Concomitant]
  5. GLIPIZIDE [Concomitant]
  6. REVLIMID [Suspect]
     Indication: MULTIPLE MYELOMA
     Dosage: 25 MG, X 21 DAYS/7 DAYS OFF, PO ; 10 MG, DAILY X 21 DAYS/7 DYAS OFF
     Route: 048
     Dates: start: 20090901
  7. REVLIMID [Suspect]
     Indication: MULTIPLE MYELOMA
     Dosage: 25 MG, X 21 DAYS/7 DAYS OFF, PO ; 10 MG, DAILY X 21 DAYS/7 DYAS OFF
     Route: 048
     Dates: start: 20090615, end: 20090901
  8. PRILOSEC [Concomitant]
  9. LIPITOR [Concomitant]
  10. METOPROLOL TARTRATE [Concomitant]
  11. LISINOPRIL [Concomitant]
  12. ASPIRIN [Concomitant]
  13. COUMADIN [Concomitant]
  14. SENNA (SENNA) [Concomitant]
  15. ISOSORBIDE (ISOSORBDE) [Concomitant]

REACTIONS (2)
  - PNEUMONIA [None]
  - PYREXIA [None]
